FAERS Safety Report 17946508 (Version 1)
Quarter: 2020Q2

REPORT INFORMATION
  Report Type: Spontaneous
  Country: DE (occurrence: DE)
  Receive Date: 20200625
  Receipt Date: 20200625
  Transmission Date: 20200714
  Serious: Yes (Hospitalization)
  Sender: FDA-Public Use
  Company Number: DE-PFIZER INC-2020245657

PATIENT
  Age: 66 Year
  Sex: Female

DRUGS (5)
  1. SIMVASTATIN. [Concomitant]
     Active Substance: SIMVASTATIN
     Dosage: 20 MG, 1X/DAY
     Route: 048
  2. LEVOTHYROXINE SODIUM. [Concomitant]
     Active Substance: LEVOTHYROXINE SODIUM
     Dosage: 25 UG, DAILY (HALF TABLET DAILY)
     Route: 048
  3. RAMIPRIL. [Suspect]
     Active Substance: RAMIPRIL
     Dosage: 0.5 DF, BID(0.5-0-0.5-0)
     Route: 048
  4. BECLOMETASON [Concomitant]
     Active Substance: BECLOMETHASONE DIPROPIONATE
     Dosage: 2 DF, 2X/DAY
     Route: 055
  5. TORASEMID [Concomitant]
     Active Substance: TORSEMIDE
     Dosage: 0.5 DF, 1X/DAY
     Route: 048

REACTIONS (6)
  - Abdominal pain upper [Unknown]
  - Erythema [Unknown]
  - General physical health deterioration [Unknown]
  - Gastric mucosa erythema [Unknown]
  - Abdominal pain [Unknown]
  - Gastrooesophageal reflux disease [Unknown]
